FAERS Safety Report 4294612-6 (Version None)
Quarter: 2004Q1

REPORT INFORMATION
  Report Type: 
  Country: None (occurrence: None)
  Receive Date: 20040212
  Receipt Date: 20040122
  Transmission Date: 20041129
  Serious: Yes (Hospitalization)
  Sender: FDA-Public Use
  Company Number: A03200400202

PATIENT
  Age: 64 Year
  Sex: Male
  Weight: 87.9978 kg

DRUGS (6)
  1. ELOXATIN [Suspect]
     Indication: COLON CANCER METASTATIC
     Dosage: 181 MG OTHER -INTRAVENOUS NOS
     Route: 042
     Dates: start: 20040108, end: 20040108
  2. FLUOROURACIL [Concomitant]
  3. LEUCOVORIN [Concomitant]
  4. GRANISETRON [Concomitant]
  5. CLOPIDOGREL BISULFATE [Concomitant]
  6. PAROXETINE HCL [Concomitant]

REACTIONS (1)
  - ARRHYTHMIA [None]
